FAERS Safety Report 4562617-3 (Version None)
Quarter: 2005Q1

REPORT INFORMATION
  Report Type: 
  Country: None (occurrence: None)
  Receive Date: 20050127
  Receipt Date: 20050114
  Transmission Date: 20050727
  Serious: Yes (Other)
  Sender: FDA-Public Use
  Company Number: JP-JNJFOC-20041202817

PATIENT
  Sex: Male

DRUGS (11)
  1. ITRIZOLE [Suspect]
     Indication: ONYCHOMYCOSIS
     Route: 049
  2. EBASTINE [Concomitant]
     Route: 049
  3. MEXILETINE [Concomitant]
     Indication: ARRHYTHMIA
     Route: 049
  4. ENALAPRIL [Concomitant]
     Indication: HYPERTENSION
     Route: 049
  5. AMLODIPINE [Concomitant]
     Indication: HYPERTENSION
     Route: 049
  6. LOSARTAN POTASSIUM [Concomitant]
     Indication: HYPERTENSION
     Route: 049
  7. GLIMEPIRIDE [Concomitant]
     Indication: NAIL TINEA
     Route: 049
  8. ACARBOSE [Concomitant]
     Indication: DIABETES MELLITUS
     Route: 049
  9. CARVEDILOL [Concomitant]
     Indication: HYPERTENSION
     Route: 049
  10. ATORVASTATIN [Concomitant]
     Indication: HYPERLIPIDAEMIA
     Route: 049
  11. ETHYL ICOSAPENTATE [Concomitant]
     Indication: HYPERLIPIDAEMIA
     Route: 049

REACTIONS (2)
  - GENERALISED ERYTHEMA [None]
  - LARYNGEAL OEDEMA [None]
